FAERS Safety Report 6238071-2 (Version None)
Quarter: 2009Q2

REPORT INFORMATION
  Report Type: 
  Country: None (occurrence: None)
  Receive Date: 20090617
  Receipt Date: 20090617
  Transmission Date: 20091009
  Serious: Yes (Life-Threatening)
  Sender: FDA-Public Use
  Company Number: None

PATIENT
  Age: 63 Year
  Sex: Female
  Weight: 67.1324 kg

DRUGS (4)
  1. PREMPRO [Suspect]
     Indication: CARDIAC DISORDER
     Dosage: 1 DAILY DAILY PO
     Route: 048
     Dates: start: 19970601, end: 20020701
  2. PREMPRO [Suspect]
     Indication: DEMENTIA
     Dosage: 1 DAILY DAILY PO
     Route: 048
     Dates: start: 19970601, end: 20020701
  3. PREMPRO [Suspect]
     Indication: HOT FLUSH
     Dosage: 1 DAILY DAILY PO
     Route: 048
     Dates: start: 19970601, end: 20020701
  4. PREMPRO [Suspect]
     Indication: PROPHYLAXIS
     Dosage: 1 DAILY DAILY PO
     Route: 048
     Dates: start: 19970601, end: 20020701

REACTIONS (1)
  - BREAST CANCER [None]
